FAERS Safety Report 10497540 (Version 1)
Quarter: 2014Q4

REPORT INFORMATION
  Report Type: Spontaneous
  Country: GB (occurrence: GB)
  Receive Date: 20141006
  Receipt Date: 20141006
  Transmission Date: 20150528
  Serious: Yes (Other)
  Sender: FDA-Public Use
  Company Number: GB-JNJFOC-20140922969

PATIENT
  Age: 50 Year
  Sex: Female

DRUGS (6)
  1. RISPERIDONE. [Suspect]
     Active Substance: RISPERIDONE
     Indication: ANXIETY
     Route: 048
     Dates: end: 20140827
  2. RISPERIDONE. [Suspect]
     Active Substance: RISPERIDONE
     Indication: ANXIETY
     Route: 048
     Dates: start: 20140828, end: 20140910
  3. CITALOPRAM [Concomitant]
     Active Substance: CITALOPRAM HYDROBROMIDE
     Indication: ANXIETY
     Route: 048
     Dates: start: 20140607
  4. DIAZEPAM. [Concomitant]
     Active Substance: DIAZEPAM
     Indication: ANXIETY
     Dosage: 2 MG/5MLS
     Route: 048
     Dates: end: 20140607
  5. COCODAMOL [Concomitant]
     Active Substance: ACETAMINOPHEN\CODEINE PHOSPHATE
     Indication: ANALGESIC THERAPY
     Dosage: 500/8 MG
     Route: 048
  6. PAROXETINE [Concomitant]
     Active Substance: PAROXETINE\PAROXETINE HYDROCHLORIDE
     Indication: ANXIETY
     Dosage: IN THE MORNING 20 MG/10MLS.??CUMULATIVE DOSE TO FIRST REACTION 860
     Route: 048
     Dates: start: 20140607

REACTIONS (4)
  - Product use issue [Unknown]
  - Lethargy [Recovering/Resolving]
  - Urinary incontinence [Recovering/Resolving]
  - Flat affect [Recovering/Resolving]

NARRATIVE: CASE EVENT DATE: 20140901
